FAERS Safety Report 7982494-8 (Version None)
Quarter: 2011Q4

REPORT INFORMATION
  Report Type: 
  Country: None (occurrence: None)
  Receive Date: 20111215
  Receipt Date: 20111207
  Transmission Date: 20120403
  Serious: Yes (Life-Threatening, Hospitalization)
  Sender: FDA-Public Use
  Company Number: DE-ROCHE-1021394

PATIENT
  Sex: Female
  Weight: 57.5 kg

DRUGS (6)
  1. NATRIUMHYDROGENCARBONAT [Concomitant]
     Dates: start: 20090526
  2. MIRCERA [Suspect]
     Indication: NEPHROGENIC ANAEMIA
     Route: 058
     Dates: start: 20101118
  3. ALLOPURINOL [Concomitant]
     Dates: start: 20070830
  4. ALFACALCIDOL [Concomitant]
     Dates: start: 20090129
  5. FUROSEMIDE [Concomitant]
     Dates: start: 20091006
  6. SEVELAMER [Concomitant]
     Dates: start: 20100408

REACTIONS (1)
  - HYPERTHYROIDISM [None]
